FAERS Safety Report 25712002 (Version 1)
Quarter: 2025Q3

REPORT INFORMATION
  Report Type: Spontaneous
  Country: US (occurrence: US)
  Receive Date: 20250821
  Receipt Date: 20250821
  Transmission Date: 20251021
  Serious: No
  Sender: IMPEL NEUROPHARMA
  Company Number: US-IMPEL-2025-US-027291

PATIENT
  Age: 29 Year
  Sex: Female

DRUGS (1)
  1. TRUDHESA [Suspect]
     Active Substance: DIHYDROERGOTAMINE MESYLATE
     Indication: Headache
     Route: 045
     Dates: start: 20250205, end: 202506

REACTIONS (3)
  - Headache [Unknown]
  - Drug ineffective for unapproved indication [Recovered/Resolved]
  - Off label use [Recovered/Resolved]
